FAERS Safety Report 6936505-9 (Version None)
Quarter: 2010Q3

REPORT INFORMATION
  Report Type: 
  Country: None (occurrence: None)
  Receive Date: 20100823
  Receipt Date: 20100811
  Transmission Date: 20110219
  Serious: Yes (Other)
  Sender: FDA-Public Use
  Company Number: US-PFIZER INC-2010101774

PATIENT
  Sex: Female
  Weight: 37.188 kg

DRUGS (4)
  1. LYRICA [Suspect]
     Indication: PAIN
     Dosage: 50 MG, 1X/DAY
     Route: 048
     Dates: start: 20100804, end: 20100811
  2. LYRICA [Suspect]
     Dosage: 50 MG, 2X/DAY
     Route: 048
     Dates: start: 20100801, end: 20100811
  3. PERCOCET [Concomitant]
     Indication: BACK PAIN
     Dosage: 10 MG, AS NEEDED
  4. ROBAXIN [Concomitant]
     Indication: BACK PAIN
     Dosage: 750 MG, AS NEEDED

REACTIONS (9)
  - ANXIETY [None]
  - BALANCE DISORDER [None]
  - CONFUSIONAL STATE [None]
  - DISTURBANCE IN ATTENTION [None]
  - DIZZINESS [None]
  - DYSPHONIA [None]
  - FEELING ABNORMAL [None]
  - HEADACHE [None]
  - TREMOR [None]
